FAERS Safety Report 9285140 (Version 1)
Quarter: 2013Q2

REPORT INFORMATION
  Report Type: Spontaneous
  Country: US (occurrence: US)
  Receive Date: 20130513
  Receipt Date: 20130513
  Transmission Date: 20140414
  Serious: Yes (Other)
  Sender: FDA-Public Use
  Company Number: US-SANOFI-AVENTIS-2013SA045203

PATIENT
  Sex: Male

DRUGS (3)
  1. LANTUS SOLOSTAR [Suspect]
     Indication: DIABETES MELLITUS
     Dosage: DOSE:43 UNIT(S)
     Route: 058
     Dates: start: 20130429
  2. LANTUS SOLOSTAR [Suspect]
     Indication: DIABETES MELLITUS
     Dosage: DOSE:8 UNIT(S)
     Route: 058
     Dates: start: 20130430
  3. SOLOSTAR [Suspect]
     Indication: DIABETES MELLITUS
     Dates: start: 20130429

REACTIONS (4)
  - Atrial fibrillation [Unknown]
  - Loss of consciousness [Unknown]
  - Head injury [Unknown]
  - Incorrect dose administered [Unknown]
